FAERS Safety Report 15780048 (Version 1)
Quarter: 2019Q1

REPORT INFORMATION
  Report Type: Report from Study
  Country: US (occurrence: US)
  Receive Date: 20190102
  Receipt Date: 20190102
  Transmission Date: 20190417
  Serious: No
  Sender: FDA-Public Use
  Company Number: PHEH2018US055021

PATIENT
  Age: 58 Year
  Sex: Male

DRUGS (1)
  1. COSENTYX [Suspect]
     Active Substance: SECUKINUMAB
     Indication: PSORIASIS
     Dosage: 300 MG (2 SYRINGES), QW AT WEEK 4, THEN EVERY FOUR WEEKS THEREAFTER
     Route: 058

REACTIONS (2)
  - Macule [Recovering/Resolving]
  - Pruritus [Recovering/Resolving]
